FAERS Safety Report 10172126 (Version 1)
Quarter: 2014Q2

REPORT INFORMATION
  Report Type: Spontaneous
  Country: PL (occurrence: PL)
  Receive Date: 20140515
  Receipt Date: 20140515
  Transmission Date: 20141212
  Serious: Yes (Other)
  Sender: FDA-Public Use
  Company Number: PHHY2014PL055661

PATIENT
  Age: 64 Year
  Sex: Male

DRUGS (1)
  1. LEFLUNOMIDE [Suspect]
     Route: 048
     Dates: start: 20131120, end: 20131222

REACTIONS (1)
  - Erythrodermic psoriasis [Unknown]
